FAERS Safety Report 4929390-8 (Version None)
Quarter: 2006Q1

REPORT INFORMATION
  Report Type: 
  Country: None (occurrence: None)
  Receive Date: 20060224
  Receipt Date: 20060109
  Transmission Date: 20060701
  Serious: Yes (Hospitalization)
  Sender: FDA-Public Use
  Company Number: PAR_0510_2006

PATIENT
  Age: 43 Year
  Sex: Female

DRUGS (4)
  1. ISOPTIN SR [Suspect]
     Indication: MIGRAINE
     Dosage: 240 MG QDAY PO
     Route: 048
     Dates: start: 20050515, end: 20050820
  2. EPILIM [Suspect]
     Indication: MIGRAINE
     Dosage: 400 MG QDAY PO
     Route: 048
     Dates: start: 20050515, end: 20050820
  3. TRIMETHOPRIM [Suspect]
     Indication: URINARY TRACT DISORDER
     Dosage: 300 MG QDAY PO
     Route: 048
     Dates: start: 20050811, end: 20050818
  4. ZOVIRAX [Concomitant]

REACTIONS (8)
  - HAEMOGLOBIN DECREASED [None]
  - HEADACHE [None]
  - NEUTROPENIA [None]
  - PLATELET COUNT DECREASED [None]
  - PYREXIA [None]
  - RASH GENERALISED [None]
  - VOMITING [None]
  - WHITE BLOOD CELL COUNT DECREASED [None]
